FAERS Safety Report 14954142 (Version 1)
Quarter: 2018Q2

REPORT INFORMATION
  Report Type: Other
  Country: KR (occurrence: KR)
  Receive Date: 20180530
  Receipt Date: 20180530
  Transmission Date: 20180711
  Serious: Yes (Hospitalization)
  Sender: FDA-Public Use
  Company Number: KR-B. BRAUN MEDICAL INC.-2048710

PATIENT
  Age: 50 Year
  Sex: Female

DRUGS (3)
  1. DEXAMETHASONE. [Suspect]
     Active Substance: DEXAMETHASONE
  2. LIDOCAINE HYDROCHLORIDE AND DEXTROSE [Suspect]
     Active Substance: DEXTROSE\LIDOCAINE HYDROCHLORIDE
  3. ROPIVACAINE HCL [Suspect]
     Active Substance: ROPIVACAINE HYDROCHLORIDE

REACTIONS (1)
  - Monoplegia [Recovered/Resolved]
